FAERS Safety Report 6329123-7 (Version None)
Quarter: 2009Q3

REPORT INFORMATION
  Report Type: 
  Country: None (occurrence: None)
  Receive Date: 20090826
  Receipt Date: 20090813
  Transmission Date: 20100115
  Serious: Yes (Life-Threatening, Other)
  Sender: FDA-Public Use
  Company Number: GB-ELI_LILLY_AND_COMPANY-GB200908002839

PATIENT
  Age: 69 Year
  Sex: Female
  Weight: 57.15 kg

DRUGS (4)
  1. OLANZAPINE [Suspect]
     Indication: PSYCHOTIC DISORDER
     Dosage: 10 MG, UNK
     Route: 048
     Dates: start: 20081220, end: 20090729
  2. LACTULOSE [Concomitant]
  3. LOFEPRAMINE HYDROCHLORIDE [Concomitant]
  4. SENNA [Concomitant]

REACTIONS (1)
  - PULMONARY EMBOLISM [None]
